FAERS Safety Report 15127247 (Version 2)
Quarter: 2019Q1

REPORT INFORMATION
  Report Type: Spontaneous
  Country: US (occurrence: US)
  Receive Date: 20180710
  Receipt Date: 20190311
  Transmission Date: 20190417
  Serious: Yes (Other)
  Sender: FDA-Public Use
  Company Number: US-SA-2017SA263581

PATIENT
  Age: 49 Year
  Sex: Female
  Weight: 81 kg

DRUGS (6)
  1. DOXORUBICIN [Concomitant]
     Active Substance: DOXORUBICIN
     Dosage: UNK, UNK
     Route: 065
  2. TAXOTERE [Suspect]
     Active Substance: DOCETAXEL
     Indication: BREAST CANCER FEMALE
     Dosage: 140 MG, Q3W
     Route: 042
     Dates: start: 20151209, end: 20151209
  3. PARAPLATIN [Concomitant]
     Active Substance: CARBOPLATIN
     Dosage: UNK, UNK
     Route: 065
  4. TAXOTERE [Suspect]
     Active Substance: DOCETAXEL
     Dosage: 140 MG, Q3W
     Route: 042
     Dates: start: 20160210, end: 20160210
  5. NEOSAR [Concomitant]
     Active Substance: CYCLOPHOSPHAMIDE
     Dosage: UNK, UNK
     Route: 065
  6. CYTOXAN [Concomitant]
     Active Substance: CYCLOPHOSPHAMIDE
     Dosage: UNK, UNK
     Route: 065

REACTIONS (2)
  - Alopecia [Recovering/Resolving]
  - Psychological trauma [Unknown]

NARRATIVE: CASE EVENT DATE: 20160810
